FAERS Safety Report 13391101 (Version 4)
Quarter: 2017Q2

REPORT INFORMATION
  Report Type: Spontaneous
  Country: CN (occurrence: CN)
  Receive Date: 20170331
  Receipt Date: 20170516
  Transmission Date: 20170830
  Serious: Yes (Hospitalization)
  Sender: FDA-Public Use
  Company Number: CN-ASTRAZENECA-2017SE32324

PATIENT
  Age: 77 Year
  Sex: Male

DRUGS (3)
  1. ZOLADEX [Suspect]
     Active Substance: GOSERELIN ACETATE
     Indication: PROSTATE CANCER
     Route: 058
     Dates: start: 201702
  2. HYPOGLYCEMIC DRUGS [Concomitant]
     Active Substance: UNSPECIFIED INGREDIENT
     Dosage: INTERMITTENTLY
  3. CASODEX [Suspect]
     Active Substance: BICALUTAMIDE
     Route: 048

REACTIONS (9)
  - Abdominal wall haematoma [Recovering/Resolving]
  - Poor quality sleep [Unknown]
  - Injection site haemorrhage [Recovering/Resolving]
  - Blood pressure increased [Unknown]
  - Aortic disorder [Unknown]
  - Hyperuricaemia [Unknown]
  - Injection site pain [Unknown]
  - Pollakiuria [Recovered/Resolved]
  - Decreased appetite [Recovered/Resolved]

NARRATIVE: CASE EVENT DATE: 201703
